FAERS Safety Report 5098700-6 (Version None)
Quarter: 2006Q3

REPORT INFORMATION
  Report Type: 
  Country: None (occurrence: None)
  Receive Date: 20060907
  Receipt Date: 20060810
  Transmission Date: 20061208
  Serious: Yes (Hospitalization)
  Sender: FDA-Public Use
  Company Number: 2006SE04385

PATIENT
  Sex: Male

DRUGS (3)
  1. CRESTOR [Suspect]
     Route: 048
     Dates: start: 20060630
  2. AMARYL [Concomitant]
     Indication: DIABETES MELLITUS
  3. CONCOR [Concomitant]

REACTIONS (3)
  - DRUG HYPERSENSITIVITY [None]
  - INTERSTITIAL LUNG DISEASE [None]
  - PNEUMONIA VIRAL [None]
